FAERS Safety Report 4445487-3 (Version None)
Quarter: 2004Q3

REPORT INFORMATION
  Report Type: 
  Country: None (occurrence: None)
  Receive Date: 20040811
  Receipt Date: 20031103
  Transmission Date: 20050211
  Serious: Yes (Hospitalization)
  Sender: FDA-Public Use
  Company Number: 233737

PATIENT
  Age: 42 Year
  Sex: Female

DRUGS (2)
  1. NOVOLIN L(INSULIN HUMAN) SUSPENSION FOR INJECTION, 100IU/ML [Suspect]
     Indication: DIABETES MELLITUS INSULIN-DEPENDENT
     Dosage: SUBCUTANEOUS
     Route: 058
     Dates: start: 19990101
  2. HUMULIN R [Concomitant]

REACTIONS (1)
  - HYPOGLYCAEMIC COMA [None]
